FAERS Safety Report 4487365-X (Version None)
Quarter: 2004Q4

REPORT INFORMATION
  Report Type: 
  Country: None (occurrence: None)
  Receive Date: 20041027
  Receipt Date: 20041020
  Transmission Date: 20050328
  Serious: Yes (Disabling)
  Sender: FDA-Public Use
  Company Number: BR-MERCK-0410BRA00406

PATIENT
  Age: 66 Year
  Sex: Female

DRUGS (8)
  1. VIOXX [Suspect]
     Indication: OSTEOARTHRITIS
     Route: 048
     Dates: start: 19990101, end: 20040901
  2. ATORVASTATIN CALCIUM [Concomitant]
     Indication: HYPERCHOLESTEROLAEMIA
     Route: 048
  3. FENOFIBRATE [Concomitant]
     Indication: HYPERCHOLESTEROLAEMIA
     Route: 048
  4. PENTOXIFYLLINE [Concomitant]
     Indication: ANGIOPATHY
     Route: 048
  5. ASPIRIN [Concomitant]
     Indication: ANGIOPATHY
     Route: 048
  6. NAFRONYL OXALATE [Concomitant]
     Indication: ANGIOPATHY
     Route: 048
  7. CALCIUM (UNSPECIFIED) [Concomitant]
     Indication: OSTEOPOROSIS
     Route: 048
  8. MAGNESIUM (UNSPECIFIED) [Concomitant]
     Indication: OSTEOPOROSIS
     Route: 048

REACTIONS (1)
  - MACULAR DEGENERATION [None]
